FAERS Safety Report 14363053 (Version 1)
Quarter: 2018Q1

REPORT INFORMATION
  Report Type: Spontaneous
  Country: FR (occurrence: FR)
  Receive Date: 20180108
  Receipt Date: 20180108
  Transmission Date: 20180509
  Serious: No
  Sender: FDA-Public Use
  Company Number: FR-JNJFOC-20171230821

PATIENT
  Age: 15 Year
  Sex: Female
  Weight: 47 kg

DRUGS (2)
  1. MORPHINE [Suspect]
     Active Substance: MORPHINE
     Indication: SICKLE CELL ANAEMIA WITH CRISIS
     Route: 042
     Dates: start: 20171003, end: 20171004
  2. DUROGESIC [Suspect]
     Active Substance: FENTANYL
     Indication: SICKLE CELL ANAEMIA WITH CRISIS
     Route: 003
     Dates: start: 201710

REACTIONS (2)
  - Somnolence [Recovered/Resolved]
  - Medication error [Recovered/Resolved]

NARRATIVE: CASE EVENT DATE: 20171003
